FAERS Safety Report 8365897-1 (Version None)
Quarter: 2012Q2

REPORT INFORMATION
  Report Type: 
  Country: None (occurrence: None)
  Receive Date: 20120515
  Receipt Date: 20120515
  Transmission Date: 20120825
  Serious: Yes (Hospitalization)
  Sender: FDA-Public Use
  Company Number: None

PATIENT
  Age: 43 Year
  Sex: Female
  Weight: 94.1 kg

DRUGS (1)
  1. SULFAMETHOXAZOLE AND TRIMETHOPRIM [Suspect]
     Indication: URINARY TRACT INFECTION
     Dosage: 1 TAB BID PO
     Route: 048
     Dates: start: 20120125, end: 20120131

REACTIONS (7)
  - STEVENS-JOHNSON SYNDROME [None]
  - PYREXIA [None]
  - PRURITUS [None]
  - ARTHRALGIA [None]
  - RASH MACULO-PAPULAR [None]
  - HYPOTENSION [None]
  - BURNING SENSATION [None]
